FAERS Safety Report 8086711-8 (Version None)
Quarter: 2012Q1

REPORT INFORMATION
  Report Type: 
  Country: None (occurrence: None)
  Receive Date: 20120128
  Receipt Date: 20110613
  Transmission Date: 20120608
  Serious: No
  Sender: FDA-Public Use
  Company Number: US-ABBOTT-11P-163-0731840-00

PATIENT
  Sex: Female
  Weight: 84.444 kg

DRUGS (3)
  1. PENTASA [Suspect]
     Indication: CROHN'S DISEASE
  2. HUMIRA [Suspect]
     Indication: CROHN'S DISEASE
     Dates: start: 20110301
  3. AZATHIOPRINE [Suspect]
     Indication: CROHN'S DISEASE
     Dates: start: 20100301, end: 20110301

REACTIONS (1)
  - WEIGHT INCREASED [None]
